FAERS Safety Report 7199159-5 (Version None)
Quarter: 2010Q4

REPORT INFORMATION
  Report Type: 
  Country: None (occurrence: None)
  Receive Date: 20101215
  Receipt Date: 20101207
  Transmission Date: 20110411
  Serious: Yes (Hospitalization)
  Sender: FDA-Public Use
  Company Number: CIP10003015

PATIENT
  Age: 68 Year
  Sex: Male

DRUGS (2)
  1. BENET (RISEDRONATE SODIUM) TABLET, 17.5 MG [Suspect]
     Indication: OSTEOPOROSIS PROPHYLAXIS
     Dosage: 17.5 MG ONCE WEEKLY, ORAL
     Route: 048
     Dates: start: 20090203, end: 20101115
  2. PREDNISOLONE [Suspect]
     Indication: RHEUMATOID ARTHRITIS
     Dosage: ORAL
     Route: 048

REACTIONS (2)
  - ARTHRALGIA [None]
  - FEMUR FRACTURE [None]
